FAERS Safety Report 7063993-2 (Version None)
Quarter: 2010Q4

REPORT INFORMATION
  Report Type: 
  Country: None (occurrence: None)
  Receive Date: 20101026
  Receipt Date: 20101018
  Transmission Date: 20110411
  Serious: No
  Sender: FDA-Public Use
  Company Number: US-ABBOTT-10P-163-0679142-00

PATIENT
  Sex: Female
  Weight: 18.16 kg

DRUGS (6)
  1. LUPRON DEPOT [Suspect]
     Indication: ENDOMETRIOSIS
     Dates: start: 20050101, end: 20050101
  2. LUPRON DEPOT [Suspect]
     Dates: start: 20100901
  3. NEURONTIN [Concomitant]
     Indication: ARTHRALGIA
  4. NEURONTIN [Concomitant]
     Indication: AFFECTIVE DISORDER
  5. IBUPROFEN [Concomitant]
     Indication: SYSTEMIC LUPUS ERYTHEMATOSUS
  6. BACLOFEN [Concomitant]
     Indication: SYSTEMIC LUPUS ERYTHEMATOSUS

REACTIONS (2)
  - ENDOMETRIAL DISORDER [None]
  - HOT FLUSH [None]
